FAERS Safety Report 4471400-9 (Version None)
Quarter: 2004Q4

REPORT INFORMATION
  Report Type: 
  Country: None (occurrence: None)
  Receive Date: 20041007
  Receipt Date: 20040930
  Transmission Date: 20050328
  Serious: Yes (Other)
  Sender: FDA-Public Use
  Company Number: 04-09-1379

PATIENT
  Age: 4 Year
  Sex: Female
  Weight: 13 kg

DRUGS (3)
  1. FLUOXETINE [Suspect]
     Indication: ACUTE STRESS DISORDER
     Dosage: 5MG QD ORAL
     Route: 048
  2. LINEZOLID [Suspect]
     Dosage: 140MG Q12H ORAL
     Route: 048
  3. FENTANYL [Concomitant]

REACTIONS (6)
  - AGITATION [None]
  - DRUG INTERACTION [None]
  - GAZE PALSY [None]
  - MYDRIASIS [None]
  - MYOCLONUS [None]
  - RESTLESSNESS [None]
